FAERS Safety Report 18729702 (Version 1)
Quarter: 2021Q1

REPORT INFORMATION
  Report Type: Spontaneous
  Country: IT (occurrence: IT)
  Receive Date: 20210112
  Receipt Date: 20210112
  Transmission Date: 20210419
  Serious: Yes (Hospitalization)
  Sender: FDA-Public Use
  Company Number: IT-JNJFOC-20210109596

PATIENT
  Age: 9 Year
  Sex: Female

DRUGS (2)
  1. BECLOMETHASONE [Concomitant]
     Active Substance: BECLOMETHASONE
  2. REMICADE [Suspect]
     Active Substance: INFLIXIMAB
     Indication: COLITIS ULCERATIVE
     Route: 042

REACTIONS (1)
  - Cytomegalovirus enteritis [Unknown]
